FAERS Safety Report 19552267 (Version 1)
Quarter: 2021Q3

REPORT INFORMATION
  Report Type: Spontaneous
  Country: DE (occurrence: DE)
  Receive Date: 20210714
  Receipt Date: 20210714
  Transmission Date: 20211014
  Serious: Yes (Other)
  Sender: FDA-Public Use
  Company Number: DE-MYLANLABS-2021M1036209

PATIENT
  Sex: Female

DRUGS (1)
  1. VALSARTAN DURA 160 MG FILMTABLETTEN [Suspect]
     Active Substance: VALSARTAN
     Indication: PRODUCT USED FOR UNKNOWN INDICATION
     Dosage: UNK

REACTIONS (2)
  - Product odour abnormal [Recovered/Resolved]
  - Rash [Recovering/Resolving]
